FAERS Safety Report 4310759-X (Version None)
Quarter: 2004Q1

REPORT INFORMATION
  Report Type: 
  Country: None (occurrence: None)
  Receive Date: 20040303
  Receipt Date: 20040223
  Transmission Date: 20041129
  Serious: Yes (Death, Hospitalization)
  Sender: FDA-Public Use
  Company Number: WAES 0402USA01745

PATIENT
  Age: 51 Year
  Sex: Male
  Weight: 68 kg

DRUGS (1)
  1. STROMECTOL [Suspect]
     Route: 048
     Dates: start: 20031215, end: 20031215

REACTIONS (7)
  - ASTHENIA [None]
  - BACK PAIN [None]
  - COMA [None]
  - HEADACHE [None]
  - LOSS OF CONSCIOUSNESS [None]
  - PYREXIA [None]
  - STUPOR [None]
